FAERS Safety Report 6428259-X (Version None)
Quarter: 2009Q4

REPORT INFORMATION
  Report Type: 
  Country: None (occurrence: None)
  Receive Date: 20091105
  Receipt Date: 20091028
  Transmission Date: 20100525
  Serious: Yes (Hospitalization)
  Sender: FDA-Public Use
  Company Number: US-ASTRAZENECA-2009SE23229

PATIENT
  Age: 88 Year
  Sex: Female
  Weight: 64.4 kg

DRUGS (9)
  1. ENTOCORT EC [Suspect]
     Indication: CROHN'S DISEASE
     Route: 048
  2. PRILOSEC [Concomitant]
     Route: 065
  3. IMDUR [Concomitant]
     Route: 048
  4. HYDROCHLOROTHIAZIDE [Concomitant]
     Route: 065
  5. HYZAAR [Concomitant]
     Route: 065
  6. COUMADIN [Concomitant]
     Route: 065
  7. LIPITOR [Concomitant]
     Route: 065
  8. SYNTHROID [Concomitant]
     Route: 065
  9. LEVOXIN [Concomitant]
     Route: 065

REACTIONS (4)
  - COLITIS [None]
  - GASTROINTESTINAL HAEMORRHAGE [None]
  - INTESTINAL OBSTRUCTION [None]
  - UNDERDOSE [None]
